FAERS Safety Report 11833699 (Version 1)
Quarter: 2015Q4

REPORT INFORMATION
  Report Type: Spontaneous
  Country: CH (occurrence: NL)
  Receive Date: 20151214
  Receipt Date: 20151214
  Transmission Date: 20160305
  Serious: Yes (Hospitalization)
  Sender: FDA-Public Use
  Company Number: CH-LPDUSPRD-20150988

PATIENT
  Age: 41 Year
  Sex: Female
  Weight: 86 kg

DRUGS (4)
  1. HYDROXOCOBALAMIN [Concomitant]
     Active Substance: HYDROXOCOBALAMIN
     Dosage: 1000 MCG, 1 IN 1 M
     Route: 065
     Dates: start: 20150310
  2. VITAMIN B12 [Concomitant]
     Active Substance: CYANOCOBALAMIN
     Dosage: DOSE NOT PROVIDED
     Route: 065
     Dates: start: 2015
  3. FERINJECT [Suspect]
     Active Substance: FERRIC CARBOXYMALTOSE
     Dosage: 500 MG 1 IN 1 TOTAL ONCE
     Route: 041
     Dates: start: 20151007, end: 20151007
  4. CALCI CHEW D3 [Concomitant]
     Active Substance: CALCIUM CARBONATE\CHOLECALCIFEROL
     Dosage: 1 DF, 1 IN 1 DAY
     Route: 065
     Dates: start: 20150310

REACTIONS (4)
  - Liver function test abnormal [Recovered/Resolved]
  - Vomiting [Recovered/Resolved]
  - Abdominal pain upper [Recovered/Resolved]
  - Nausea [Recovered/Resolved]

NARRATIVE: CASE EVENT DATE: 20151009
